FAERS Safety Report 4499558-6 (Version None)
Quarter: 2004Q4

REPORT INFORMATION
  Report Type: 
  Country: None (occurrence: None)
  Receive Date: 20040928
  Receipt Date: 20040810
  Transmission Date: 20050328
  Serious: No
  Sender: FDA-Public Use
  Company Number: 04P-163-0270249-00

PATIENT
  Age: 64 Year
  Sex: Female

DRUGS (10)
  1. HUMIRA [Suspect]
     Indication: RHEUMATOID ARTHRITIS
     Dosage: 40 MG 1 IN 2 WK SUBCUTANEOUS
     Route: 058
     Dates: start: 20030101
  2. CELECOXIB [Concomitant]
  3. LANSOPRAZOLE [Concomitant]
  4. OXYCONTIN [Concomitant]
  5. METHOTREXATE [Concomitant]
  6. PILOCARPINE [Concomitant]
  7. FLUTICASONE PROPIONATE [Concomitant]
  8. BIMATOPROST [Concomitant]
  9. ALENDRONATE SODIUM [Concomitant]
  10. SALBUTAMOL [Concomitant]

REACTIONS (2)
  - BRONCHITIS [None]
  - SINUSITIS [None]
